FAERS Safety Report 18055860 (Version 4)
Quarter: 2020Q3

REPORT INFORMATION
  Report Type: Spontaneous
  Country: FR (occurrence: FR)
  Receive Date: 20200722
  Receipt Date: 20200907
  Transmission Date: 20201103
  Serious: Yes (Death)
  Sender: FDA-Public Use
  Company Number: FR-009507513-2007FRA006180

PATIENT
  Age: 73 Year
  Sex: Male
  Weight: 98 kg

DRUGS (8)
  1. TIENAM 500MG/500MG, POUDRE POUR PERFUSION [Suspect]
     Active Substance: CILASTATIN SODIUM\IMIPENEM
     Indication: SEPSIS
     Dosage: UNK
     Route: 041
     Dates: start: 20200622, end: 20200624
  2. AMIKACIN. [Suspect]
     Active Substance: AMIKACIN
     Indication: SEPSIS
     Dosage: UNK; SUSPECTED FOR ACUTE KIDNEY FAILURE
     Route: 041
     Dates: start: 20200622, end: 20200622
  3. GENTAMICIN. [Suspect]
     Active Substance: GENTAMICIN
     Indication: SEPSIS
     Dosage: UNK, SUSPECTED FOR ACUTE KIDNEY FAILURE
     Route: 041
     Dates: start: 20200623, end: 20200625
  4. OCTAGAM IMMUNE GLOBULIN (HUMAN) [Suspect]
     Active Substance: HUMAN IMMUNOGLOBULIN G
     Dosage: UNK; REPORTED STRENGTH: 50 MG/ML, BATCH TESTED: WITHIN SPECIFICATIONSADDITIONAL BATCH NOS: M00748446
     Route: 041
     Dates: start: 20200619, end: 20200623
  5. VIALEBEX [Suspect]
     Active Substance: ALBUMIN HUMAN
     Indication: GUILLAIN-BARRE SYNDROME
     Dosage: 200 MG/ML, SUSPECTED FOR BOTH ACUTE KIDNEY FAILURE AND SEPSIS
     Route: 041
     Dates: start: 20200619, end: 20200623
  6. VANCOMYCIN [Suspect]
     Active Substance: VANCOMYCIN
     Indication: SEPSIS
     Dosage: UNK; SUSPECTED FOR ACUTE KIDNEY FAILURE
     Route: 041
     Dates: start: 20200622, end: 20200625
  7. OCTAGAM IMMUNE GLOBULIN (HUMAN) [Suspect]
     Active Substance: HUMAN IMMUNOGLOBULIN G
     Indication: GUILLAIN-BARRE SYNDROME
     Dosage: UNK; REPORTED STRENGTH: 50 MG/ML, BATCH TESTED: WITHIN SPECIFICATIONSADDITIONAL BATCH NOS: M00748446
     Route: 041
     Dates: start: 20200619, end: 20200623
  8. OCTAGAM IMMUNE GLOBULIN (HUMAN) [Suspect]
     Active Substance: HUMAN IMMUNOGLOBULIN G
     Dosage: UNK; REPORTED STRENGTH: 50 MG/ML, BATCH TESTED: WITHIN SPECIFICATIONSADDITIONAL BATCH NOS: M00748446
     Route: 041
     Dates: start: 20200619, end: 20200623

REACTIONS (2)
  - Sepsis [Fatal]
  - Acute kidney injury [Fatal]

NARRATIVE: CASE EVENT DATE: 20200622
